FAERS Safety Report 7237300-6 (Version None)
Quarter: 2011Q1

REPORT INFORMATION
  Report Type: 
  Country: None (occurrence: None)
  Receive Date: 20110111
  Receipt Date: 20110104
  Transmission Date: 20110831
  Serious: Yes (Death, Other)
  Sender: FDA-Public Use
  Company Number: JP-ACCORD-007464

PATIENT
  Age: 33 Year
  Sex: Female

DRUGS (5)
  1. ETOPOSIDE [Suspect]
     Indication: CHEMOTHERAPY
     Dosage: 80.00MG/M2
  2. IRINOTECAN HCL [Suspect]
     Indication: CHEMOTHERAPY
     Dosage: 80.00-MG/M2
  3. PACLITAXEL [Suspect]
     Indication: CHEMOTHERAPY
     Dosage: 175.00-MG/M2
  4. CISPLATIN [Suspect]
     Indication: CHEMOTHERAPY
     Dosage: 50.00-MG/M2
  5. CARBOPLATIN [Suspect]
     Indication: CHEMOTHERAPY

REACTIONS (12)
  - INTRACRANIAL PRESSURE INCREASED [None]
  - METASTASES TO LUNG [None]
  - DISORIENTATION [None]
  - METASTASES TO LYMPH NODES [None]
  - EYE MOVEMENT DISORDER [None]
  - METASTASES TO PANCREAS [None]
  - CONVULSION [None]
  - BRAIN HERNIATION [None]
  - TREATMENT FAILURE [None]
  - METASTASES TO MENINGES [None]
  - METASTASES TO BREAST [None]
  - ACUTE RESPIRATORY FAILURE [None]
